FAERS Safety Report 5047246-X (Version None)
Quarter: 2006Q3

REPORT INFORMATION
  Report Type: 
  Country: None (occurrence: None)
  Receive Date: 20060703
  Receipt Date: 20060620
  Transmission Date: 20061208
  Serious: Yes (Hospitalization)
  Sender: FDA-Public Use
  Company Number: THYR-10305

PATIENT
  Age: 72 Year
  Sex: Female
  Weight: 55 kg

DRUGS (2)
  1. THYROGEN [Suspect]
     Indication: DIAGNOSTIC PROCEDURE
     Dosage: 0.9 MG DAILY IM
     Route: 030
     Dates: start: 20060123, end: 20060124
  2. LEVOTHYROX [Concomitant]

REACTIONS (11)
  - BALANCE DISORDER [None]
  - BRAIN SCAN ABNORMAL [None]
  - CALCINOSIS [None]
  - CEREBELLAR SYNDROME [None]
  - CEREBROVASCULAR ACCIDENT [None]
  - DIZZINESS [None]
  - HEADACHE [None]
  - NYSTAGMUS [None]
  - VERTIGO [None]
  - VISION BLURRED [None]
  - VOMITING [None]
